FAERS Safety Report 4735553-7 (Version None)
Quarter: 2005Q3

REPORT INFORMATION
  Report Type: 
  Country: None (occurrence: None)
  Receive Date: 20050805
  Receipt Date: 20050726
  Transmission Date: 20060218
  Serious: Yes (Hospitalization)
  Sender: FDA-Public Use
  Company Number: JP-MERCK-0508USA00012

PATIENT
  Age: 32 Year
  Sex: Male

DRUGS (4)
  1. PEPCID RPD [Suspect]
     Route: 048
     Dates: start: 20021201
  2. BEHYD [Suspect]
     Route: 065
     Dates: start: 20021201
  3. CONAN [Suspect]
     Route: 065
     Dates: start: 20021201
  4. AMLODIN [Suspect]
     Route: 065
     Dates: start: 20021201

REACTIONS (5)
  - AUTOIMMUNE DISORDER [None]
  - HEPATIC ATROPHY [None]
  - HEPATIC FAILURE [None]
  - HEPATIC NECROSIS [None]
  - PLATELET COUNT DECREASED [None]
